FAERS Safety Report 17291414 (Version 1)
Quarter: 2020Q1

REPORT INFORMATION
  Report Type: Spontaneous
  Country: ES (occurrence: ES)
  Receive Date: 20200121
  Receipt Date: 20200121
  Transmission Date: 20200409
  Serious: Yes (Other)
  Sender: FDA-Public Use
  Company Number: ES-SUN PHARMACEUTICAL INDUSTRIES LTD-2020RR-233941

PATIENT
  Age: 50 Year
  Sex: Female

DRUGS (1)
  1. GEMCITABINE. [Suspect]
     Active Substance: GEMCITABINE
     Indication: BREAST CANCER METASTATIC
     Dosage: NOT REPORTED ()
     Route: 041
     Dates: start: 1999

REACTIONS (2)
  - Dermatitis [Recovered/Resolved]
  - Metaplasia [Recovered/Resolved]

NARRATIVE: CASE EVENT DATE: 1999
